FAERS Safety Report 8565328-2 (Version None)
Quarter: 2012Q3

REPORT INFORMATION
  Report Type: 
  Country: None (occurrence: None)
  Receive Date: 20120723
  Receipt Date: 20120705
  Transmission Date: 20120928
  Serious: Yes (Hospitalization)
  Sender: FDA-Public Use
  Company Number: DSA_58533_2012

PATIENT
  Age: 65 Year
  Sex: Female
  Weight: 51.8 kg

DRUGS (10)
  1. GRANISETRON [Concomitant]
  2. DEXAMETHASONE [Concomitant]
  3. FLUOROURACIL [Suspect]
     Indication: BREAST CANCER
     Dosage: DF, EVERY THREE WEEKS INTRAVENOUS, DF, EVERY THREE WEEKS INTRAVENOUS
     Route: 042
     Dates: start: 20100807, end: 20100807
  4. FLUOROURACIL [Suspect]
     Indication: BREAST CANCER
     Dosage: DF, EVERY THREE WEEKS INTRAVENOUS, DF, EVERY THREE WEEKS INTRAVENOUS
     Route: 042
     Dates: start: 20100909
  5. LAMIVUDINE [Concomitant]
  6. METOCLOPRAMIDE HYDROCHLORIDE [Concomitant]
  7. CYCLOPHOSPHAMIDE [Suspect]
     Dosage: DF, EVERY THREE WEEKS INTRAVENOUS, DF, EVERY THREE WEEKS INTRAVENOUS
     Route: 042
     Dates: start: 20100807
  8. CYCLOPHOSPHAMIDE [Suspect]
     Dosage: DF, EVERY THREE WEEKS INTRAVENOUS, DF, EVERY THREE WEEKS INTRAVENOUS
     Route: 042
     Dates: start: 20100909
  9. EPIRUBICIN [Suspect]
     Indication: BREAST CANCER
     Dosage: DF, EVERY THREE WEEKS INTRAVENOUS, DF, EVERY THREE WEEKS INTRAVENOUS
     Route: 042
     Dates: start: 20100909
  10. EPIRUBICIN [Suspect]
     Indication: BREAST CANCER
     Dosage: DF, EVERY THREE WEEKS INTRAVENOUS, DF, EVERY THREE WEEKS INTRAVENOUS
     Route: 042
     Dates: start: 20100807, end: 20100807

REACTIONS (4)
  - POSTOPERATIVE WOUND INFECTION [None]
  - POSTOPERATIVE WOUND COMPLICATION [None]
  - WOUND INFECTION STAPHYLOCOCCAL [None]
  - ACINETOBACTER INFECTION [None]
